FAERS Safety Report 15738527 (Version 1)
Quarter: 2018Q4

REPORT INFORMATION
  Report Type: Spontaneous
  Country: US (occurrence: US)
  Receive Date: 20181219
  Receipt Date: 20181219
  Transmission Date: 20190205
  Serious: No
  Sender: FDA-Public Use
  Company Number: US-PFIZER INC-2018514222

PATIENT
  Age: 71 Year
  Sex: Female
  Weight: 46.72 kg

DRUGS (1)
  1. CHANTIX [Suspect]
     Active Substance: VARENICLINE TARTRATE
     Indication: SMOKING CESSATION THERAPY
     Dosage: UNK (1/2 TABLET FOR 3 DAYS, THEN 1/2 TABLET TWICE A DAY FOR 3 DAYS AND A WHOLE TABLET TWICE A DAY)
     Route: 048
     Dates: start: 20180814, end: 201809

REACTIONS (3)
  - Erythema [Not Recovered/Not Resolved]
  - Product use issue [Unknown]
  - Peripheral swelling [Not Recovered/Not Resolved]

NARRATIVE: CASE EVENT DATE: 201808
